FAERS Safety Report 8505427-4 (Version None)
Quarter: 2012Q3

REPORT INFORMATION
  Report Type: 
  Country: None (occurrence: None)
  Receive Date: 20120712
  Receipt Date: 20120706
  Transmission Date: 20120928
  Serious: Yes (Hospitalization, Other)
  Sender: FDA-Public Use
  Company Number: PHHY2012FR053966

PATIENT
  Sex: Male

DRUGS (5)
  1. METHADONE HCL [Concomitant]
     Dosage: 80 MG IN THE MORNING
     Dates: start: 20030101
  2. RISPERDAL [Concomitant]
     Dosage: 50 MG EVERY 15 DAYS
     Route: 030
  3. VALIUM [Concomitant]
     Dosage: 10 MG DAILY
  4. RITALIN [Suspect]
     Route: 058
     Dates: start: 20120601, end: 20120610
  5. TERCIAN [Concomitant]
     Dosage: 1 DF, TID
     Route: 048

REACTIONS (10)
  - CHOLESTASIS [None]
  - CREPITATIONS [None]
  - INTENTIONAL DRUG MISUSE [None]
  - INJECTION SITE ABSCESS [None]
  - PURULENCE [None]
  - INJECTION SITE OEDEMA [None]
  - INJECTION SITE ERYTHEMA [None]
  - INCORRECT ROUTE OF DRUG ADMINISTRATION [None]
  - INJECTION SITE PAIN [None]
  - LEUKOCYTOSIS [None]
